FAERS Safety Report 11516429 (Version 3)
Quarter: 2015Q3

REPORT INFORMATION
  Report Type: Spontaneous
  Country: US (occurrence: US)
  Receive Date: 20150917
  Receipt Date: 20150930
  Transmission Date: 20151125
  Serious: No
  Sender: FDA-Public Use
  Company Number: US-PFIZER INC-2015298990

PATIENT
  Age: 53 Year
  Sex: Female
  Weight: 124 kg

DRUGS (4)
  1. LYRICA [Suspect]
     Active Substance: PREGABALIN
     Dosage: 150 MG, 2X/DAY
     Route: 048
     Dates: start: 201508, end: 201508
  2. LYRICA [Suspect]
     Active Substance: PREGABALIN
     Dosage: ONE 75MG CAPSULE IN THE MORNING, 150MG WITH DINNER, AND ONE 75MG CAPSULE AT BEDTIME
     Route: 048
     Dates: start: 201506, end: 201508
  3. LYRICA [Suspect]
     Active Substance: PREGABALIN
     Indication: SPINAL COLUMN STENOSIS
     Dosage: 75 MG, 2X/DAY
     Route: 048
     Dates: start: 201505
  4. LYRICA [Suspect]
     Active Substance: PREGABALIN
     Dosage: 150 MG, 1X/DAY
     Route: 048
     Dates: start: 20150831

REACTIONS (7)
  - Condition aggravated [Not Recovered/Not Resolved]
  - Weight increased [Not Recovered/Not Resolved]
  - Personality change [Recovering/Resolving]
  - Pain [Unknown]
  - Tobacco user [Not Recovered/Not Resolved]
  - Impatience [Recovering/Resolving]
  - Drug intolerance [Unknown]

NARRATIVE: CASE EVENT DATE: 201505
